FAERS Safety Report 7946011-0 (Version None)
Quarter: 2011Q4

REPORT INFORMATION
  Report Type: 
  Country: None (occurrence: None)
  Receive Date: 20111123
  Receipt Date: 20111115
  Transmission Date: 20120403
  Serious: Yes (Other)
  Sender: FDA-Public Use
  Company Number: 2011SP053798

PATIENT
  Age: 70 Year
  Sex: Female

DRUGS (5)
  1. CEFCAPENE PIVOXIL HYDROCHLORIDE [Concomitant]
  2. MIRTAZAPINE [Suspect]
     Indication: DEPRESSION
     Dosage: 15 MG;QD;PO
     Route: 048
     Dates: start: 20111113, end: 20111114
  3. CEFAZOLIN [Suspect]
     Dosage: 2 GM;QD
     Dates: start: 20111110, end: 20111113
  4. FLURBIPROFEN [Concomitant]
  5. CLARITHROMYCIN [Concomitant]

REACTIONS (1)
  - DRUG ERUPTION [None]
